FAERS Safety Report 4385125-1 (Version None)
Quarter: 2004Q2

REPORT INFORMATION
  Report Type: 
  Country: None (occurrence: None)
  Receive Date: 20040622
  Receipt Date: 20040609
  Transmission Date: 20050107
  Serious: Yes (Other)
  Sender: FDA-Public Use
  Company Number: JP-JNJFOC-20040602712

PATIENT
  Age: 28 Year
  Sex: Male

DRUGS (3)
  1. NEOPERIDOL (HALOPERIDOL DECANOATE) INJECTION [Suspect]
     Indication: DRUG USE FOR UNKNOWN INDICATION
     Dosage: 50 MG, IN 1 DAY, INTRAMUSCULAR
     Route: 030
     Dates: end: 20000101
  2. ZYPREXA [Suspect]
     Indication: DRUG USE FOR UNKNOWN INDICATION
     Dosage: 20 MG, IN 1 DAY, ORAL
     Route: 048
  3. PEROSPIRONE (ALL OTHER THERAPEUTIC PRODUCTS) [Suspect]
     Indication: DRUG USE FOR UNKNOWN INDICATION
     Dosage: 48 MG, 1 IN 1 DAY, ORAL
     Route: 048

REACTIONS (2)
  - CONVULSION [None]
  - RHABDOMYOLYSIS [None]
